FAERS Safety Report 7611785-5 (Version None)
Quarter: 2011Q3

REPORT INFORMATION
  Report Type: 
  Country: None (occurrence: None)
  Receive Date: 20110715
  Receipt Date: 20110713
  Transmission Date: 20111222
  Serious: Yes (Other)
  Sender: FDA-Public Use
  Company Number: US-PFIZER INC-2011159431

PATIENT
  Sex: Female
  Weight: 68.027 kg

DRUGS (3)
  1. CHANTIX [Suspect]
     Indication: SMOKING CESSATION THERAPY
     Dosage: 0.5 MG, DAILY
     Route: 048
     Dates: start: 20110709, end: 20110712
  2. SYNTHROID [Concomitant]
     Indication: THYROID DISORDER
     Dosage: 25 MG, DAILY
     Dates: start: 20090101
  3. LOVAZA [Concomitant]
     Indication: MEDICAL DIET
     Dosage: 1000 MG, DAILY
     Dates: start: 20101201

REACTIONS (5)
  - PHARYNGEAL OEDEMA [None]
  - HYPERTENSION [None]
  - SENSATION OF FOREIGN BODY [None]
  - THROAT TIGHTNESS [None]
  - TERMINAL INSOMNIA [None]
